FAERS Safety Report 6659562-6 (Version None)
Quarter: 2010Q1

REPORT INFORMATION
  Report Type: 
  Country: None (occurrence: None)
  Receive Date: 20100322
  Receipt Date: 20090210
  Transmission Date: 20100710
  Serious: Yes (Other)
  Sender: FDA-Public Use
  Company Number: 2009US-20801

PATIENT
  Age: 34 Year
  Sex: Female

DRUGS (2)
  1. ISOTRETINOIN [Suspect]
     Indication: ACNE
     Dosage: 30 MG, QAM / 40 MG QPM, ORAL
     Route: 048
     Dates: start: 20080502, end: 20080801
  2. ISOTRETINOIN [Suspect]
     Indication: ACNE
     Dosage: 40MG, QPM, ORAL
     Route: 048
     Dates: start: 20080502, end: 20080801

REACTIONS (1)
  - HEPATIC ENZYME INCREASED [None]
